FAERS Safety Report 11137517 (Version 1)
Quarter: 2015Q2

REPORT INFORMATION
  Report Type: Spontaneous
  Country: US (occurrence: US)
  Receive Date: 20150526
  Receipt Date: 20150526
  Transmission Date: 20150821
  Serious: Yes (Hospitalization, Other)
  Sender: FDA-Public Use
  Company Number: US-ELI_LILLY_AND_COMPANY-US201505005280

PATIENT
  Age: 85 Year
  Sex: Female

DRUGS (7)
  1. ZYPREXA [Suspect]
     Active Substance: OLANZAPINE
     Dosage: 10 MG, QD
     Route: 065
  2. OLANZAPINE. [Suspect]
     Active Substance: OLANZAPINE
     Indication: SCHIZOPHRENIA
     Dosage: 5 MG, EACH MORNING
     Route: 065
  3. OLANZAPINE. [Suspect]
     Active Substance: OLANZAPINE
     Dosage: 5 MG, EACH EVENING
     Route: 065
  4. OLANZAPINE. [Suspect]
     Active Substance: OLANZAPINE
     Dosage: 10 MG, QD
     Route: 065
  5. PROZAC [Suspect]
     Active Substance: FLUOXETINE HYDROCHLORIDE
     Indication: DEPRESSION
     Dosage: 2 MG, UNKNOWN
     Route: 065
     Dates: start: 200602
  6. ZYPREXA [Suspect]
     Active Substance: OLANZAPINE
     Indication: SCHIZOPHRENIA
     Dosage: 5 MG, EACH MORNING
     Route: 065
  7. ZYPREXA [Suspect]
     Active Substance: OLANZAPINE
     Dosage: 5 MG, EACH EVENING
     Route: 065

REACTIONS (14)
  - Full blood count decreased [Unknown]
  - Eating disorder [Unknown]
  - Parkinsonism [Unknown]
  - Blindness unilateral [Unknown]
  - Drug dose omission [Unknown]
  - Gait disturbance [Unknown]
  - Erosive oesophagitis [Unknown]
  - Wrong technique in drug usage process [Unknown]
  - Malaise [Unknown]
  - Fall [Unknown]
  - Glaucoma [Unknown]
  - Oesophageal haemorrhage [Unknown]
  - Cataract [Unknown]
  - Underdose [Unknown]
